FAERS Safety Report 5474822-2 (Version None)
Quarter: 2007Q4

REPORT INFORMATION
  Report Type: 
  Country: None (occurrence: None)
  Receive Date: 20071002
  Receipt Date: 20070921
  Transmission Date: 20080405
  Serious: Yes (Hospitalization)
  Sender: FDA-Public Use
  Company Number: US-MERCK-0709USA04483

PATIENT
  Age: 69 Year
  Sex: Male

DRUGS (13)
  1. MEVACOR [Suspect]
     Indication: DYSLIPIDAEMIA
     Route: 048
     Dates: end: 20051101
  2. DIGOXIN [Concomitant]
     Route: 065
  3. LASIX [Concomitant]
     Route: 065
  4. PROZAC [Concomitant]
     Route: 065
  5. POTASSIUM (UNSPECIFIED) [Concomitant]
     Route: 065
  6. TOPROL-XL [Concomitant]
     Route: 065
  7. ALLOPURINOL [Concomitant]
     Route: 065
  8. COUMADIN [Concomitant]
     Route: 065
  9. AMITRIPTYLINE HYDROCHLORIDE [Concomitant]
     Route: 065
  10. FLOMAX (MORNIFLUMATE) [Concomitant]
     Route: 065
  11. ALDACTONE [Concomitant]
     Route: 065
  12. CALCIUM (UNSPECIFIED) [Concomitant]
     Route: 065
  13. MS CONTIN [Concomitant]
     Route: 065

REACTIONS (2)
  - MYOPATHY [None]
  - PAIN [None]
